FAERS Safety Report 8360132-2 (Version None)
Quarter: 2012Q2

REPORT INFORMATION
  Report Type: 
  Country: None (occurrence: None)
  Receive Date: 20120515
  Receipt Date: 20110616
  Transmission Date: 20120825
  Serious: No
  Sender: FDA-Public Use
  Company Number: US-ALEXION-A201100882

PATIENT

DRUGS (2)
  1. FOLIC ACID [Concomitant]
     Dosage: QD
  2. SOLIRIS [Suspect]
     Indication: PAROXYSMAL NOCTURNAL HAEMOGLOBINURIA
     Dosage: 900 MG, Q2W
     Route: 042
     Dates: start: 20110505

REACTIONS (2)
  - SINUSITIS [None]
  - HAEMOGLOBIN DECREASED [None]
